FAERS Safety Report 12335994 (Version 1)
Quarter: 2016Q2

REPORT INFORMATION
  Report Type: Spontaneous
  Country: US (occurrence: None)
  Receive Date: 20160504
  Receipt Date: 20160504
  Transmission Date: 20160815
  Serious: Yes (Disabling)
  Sender: FDA-Public Use
  Company Number: None

PATIENT
  Age: 41 Year
  Sex: Male
  Weight: 79.38 kg

DRUGS (3)
  1. CLOMIPHREN CITRATE [Concomitant]
  2. CABERGONE [Concomitant]
  3. PROPECIA [Suspect]
     Active Substance: FINASTERIDE
     Indication: ANDROGENETIC ALOPECIA

REACTIONS (4)
  - Libido decreased [None]
  - Anorgasmia [None]
  - Ejaculation delayed [None]
  - Depression [None]
